FAERS Safety Report 9880837 (Version 1)
Quarter: 2014Q1

REPORT INFORMATION
  Report Type: Spontaneous
  Country: US (occurrence: US)
  Receive Date: 20140207
  Receipt Date: 20140207
  Transmission Date: 20141002
  Serious: No
  Sender: FDA-Public Use
  Company Number: US-PFIZER INC-2014035440

PATIENT
  Age: 71 Year
  Sex: Female
  Weight: 102.4 kg

DRUGS (2)
  1. NEURONTIN [Suspect]
     Dosage: UNK
  2. DIOVANE [Concomitant]
     Indication: HYPERTENSION
     Dosage: 80 MG, DAILY

REACTIONS (2)
  - Mental status changes [Unknown]
  - Memory impairment [Unknown]
